FAERS Safety Report 7213183-5 (Version None)
Quarter: 2011Q1

REPORT INFORMATION
  Report Type: 
  Country: None (occurrence: None)
  Receive Date: 20110106
  Receipt Date: 20101216
  Transmission Date: 20110831
  Serious: No
  Sender: FDA-Public Use
  Company Number: US-B.I. PHARMACEUTICALS,INC./RIDGEFIELD-2010-BP-14819BP

PATIENT
  Sex: Male

DRUGS (5)
  1. MEDICATION NOT OTHERWISE SPECIFIED [Concomitant]
     Indication: BLOOD CHOLESTEROL INCREASED
  2. LEVOXYL [Concomitant]
     Indication: HYPOTHYROIDISM
     Route: 048
  3. PRADAXA [Suspect]
     Indication: ATRIAL FIBRILLATION
     Dosage: 300 MG
     Route: 048
     Dates: start: 20101209
  4. MEDICATION NOT OTHERWISE SPECIFIED [Concomitant]
     Indication: HYPERTENSION
  5. METFORMIN HCL [Concomitant]
     Indication: DIABETES MELLITUS
     Route: 048

REACTIONS (2)
  - CHEST PAIN [None]
  - PRODUCTIVE COUGH [None]
